FAERS Safety Report 5676804-4 (Version None)
Quarter: 2008Q1

REPORT INFORMATION
  Report Type: 
  Country: None (occurrence: None)
  Receive Date: 20080318
  Receipt Date: 20080306
  Transmission Date: 20080703
  Serious: No
  Sender: FDA-Public Use
  Company Number: 20084799

PATIENT
  Sex: Female

DRUGS (1)
  1. LIORESAL [Suspect]
     Indication: MUSCLE SPASTICITY
     Dosage: UNK MCG DAILY INTRATHECAL
     Route: 037

REACTIONS (4)
  - ASTHENIA [None]
  - CATHETER RELATED COMPLICATION [None]
  - DRUG INEFFECTIVE [None]
  - EXCESSIVE GRANULATION TISSUE [None]
